FAERS Safety Report 7686403-0 (Version None)
Quarter: 2011Q3

REPORT INFORMATION
  Report Type: 
  Country: None (occurrence: None)
  Receive Date: 20110816
  Receipt Date: 20110803
  Transmission Date: 20111222
  Serious: Yes (Hospitalization)
  Sender: FDA-Public Use
  Company Number: JP-ELI_LILLY_AND_COMPANY-JP201105008222

PATIENT
  Weight: 2.81 kg

DRUGS (8)
  1. HIRNAMIN [Concomitant]
     Indication: INSOMNIA
     Dosage: UNK
     Route: 064
     Dates: end: 20110214
  2. HIRNAMIN [Concomitant]
     Dosage: UNK
     Route: 064
     Dates: end: 20110214
  3. ZOLPIDEM [Concomitant]
     Dosage: UNK
     Route: 064
     Dates: end: 20110214
  4. RISPERDAL [Concomitant]
     Dosage: UNK
     Route: 064
     Dates: start: 20101003, end: 20101007
  5. ZYPREXA [Suspect]
     Dosage: 20 MG, QD
     Route: 064
     Dates: end: 20110214
  6. ZOLPIDEM [Concomitant]
     Indication: INSOMNIA
     Dosage: UNK
     Route: 064
     Dates: end: 20110214
  7. RISPERDAL [Concomitant]
     Indication: BIPOLAR I DISORDER
     Dosage: UNK
     Route: 064
     Dates: start: 20101003, end: 20101007
  8. ZYPREXA [Suspect]
     Indication: BIPOLAR I DISORDER
     Dosage: 20 MG, QD
     Route: 064
     Dates: end: 20110214

REACTIONS (3)
  - DEHYDRATION [None]
  - MATERNAL EXPOSURE DURING PREGNANCY [None]
  - VOMITING NEONATAL [None]
